FAERS Safety Report 8027224-9 (Version None)
Quarter: 2012Q1

REPORT INFORMATION
  Report Type: 
  Country: None (occurrence: None)
  Receive Date: 20120104
  Receipt Date: 20111220
  Transmission Date: 20120608
  Serious: Yes (Death, Life-Threatening)
  Sender: FDA-Public Use
  Company Number: GB-007102

PATIENT
  Age: 11 Year
  Sex: Male

DRUGS (2)
  1. THYROXINE (LEVOTHYROXINE SODIUM0 [Concomitant]
  2. ZOMACTON (SOMATROPIN) POWDER AND SOLVENT FOR SOLUTION FOR INJECTION [Suspect]
     Indication: GROWTH HORMONE DEFICIENCY
     Dosage: 1 MG
     Route: 058
     Dates: start: 20110504

REACTIONS (1)
  - MEDULLOBLASTOMA RECURRENT [None]
